FAERS Safety Report 15771094 (Version 4)
Quarter: 2020Q4

REPORT INFORMATION
  Report Type: Spontaneous
  Country: US (occurrence: US)
  Receive Date: 20181228
  Receipt Date: 20201123
  Transmission Date: 20210113
  Serious: Yes (Death, Hospitalization)
  Sender: FDA-Public Use
  Company Number: US-JNJFOC-20181233342

PATIENT
  Age: 63 Year
  Sex: Female

DRUGS (9)
  1. CETIRIZINE [Concomitant]
     Active Substance: CETIRIZINE HYDROCHLORIDE
  2. SPIRONOLACTONE. [Concomitant]
     Active Substance: SPIRONOLACTONE
  3. SULFAMETHOXAZOLE W/TRIMETHOPRIM [Concomitant]
     Active Substance: SULFAMETHOXAZOLE\TRIMETHOPRIM
     Dosage: 800-160 MG
  4. OXYCODONE [Concomitant]
     Active Substance: OXYCODONE
  5. AMOXICILLINUM ANHYDRICUM [Concomitant]
     Active Substance: AMOXICILLIN
     Dosage: 500-125 MG
  6. XARELTO [Suspect]
     Active Substance: RIVAROXABAN
     Indication: PULMONARY EMBOLISM
     Dosage: 15 MG
     Route: 048
     Dates: start: 20171115, end: 20171220
  7. FAMOTIDINE. [Concomitant]
     Active Substance: FAMOTIDINE
  8. IBUPROFEN. [Concomitant]
     Active Substance: IBUPROFEN
  9. FUROSEMIDE. [Concomitant]
     Active Substance: FUROSEMIDE

REACTIONS (3)
  - Haemorrhage [Unknown]
  - Mental status changes [Unknown]
  - Toxicity to various agents [Unknown]

NARRATIVE: CASE EVENT DATE: 20171219
